FAERS Safety Report 7694422-3 (Version None)
Quarter: 2011Q3

REPORT INFORMATION
  Report Type: 
  Country: None (occurrence: None)
  Receive Date: 20110819
  Receipt Date: 20110817
  Transmission Date: 20111222
  Serious: Yes (Hospitalization, Other)
  Sender: FDA-Public Use
  Company Number: US-PFIZER INC-2011140496

PATIENT
  Sex: Male
  Weight: 80.726 kg

DRUGS (4)
  1. CHANTIX [Suspect]
     Indication: SMOKING CESSATION THERAPY
     Dosage: 0.5 MG, UNK
     Route: 048
     Dates: start: 20110607, end: 20110620
  2. ATIVAN [Suspect]
     Indication: AMNESIA
     Dosage: UNK DOSE FOUR TIMES A DAY
     Dates: start: 20110101
  3. ATIVAN [Suspect]
     Indication: PARANOIA
  4. CHANTIX [Suspect]
     Dosage: UNK
     Route: 048
     Dates: start: 20110607

REACTIONS (6)
  - CONFUSIONAL STATE [None]
  - MOOD ALTERED [None]
  - PARANOIA [None]
  - FEELING ABNORMAL [None]
  - DYSPNOEA [None]
  - AMNESIA [None]
